FAERS Safety Report 12404031 (Version 2)
Quarter: 2016Q4

REPORT INFORMATION
  Report Type: Spontaneous
  Country: US (occurrence: US)
  Receive Date: 20160525
  Receipt Date: 20161229
  Transmission Date: 20170207
  Serious: No
  Sender: FDA-Public Use
  Company Number: US-GLAXOSMITHKLINE-US2016GSK073453

PATIENT
  Sex: Female

DRUGS (6)
  1. ACYCLOVIR. [Suspect]
     Active Substance: ACYCLOVIR
  2. ASPIRIN. [Suspect]
     Active Substance: ASPIRIN
  3. VOLTAREN [Suspect]
     Active Substance: DICLOFENAC SODIUM
     Indication: PRODUCT USED FOR UNKNOWN INDICATION
     Dosage: UNK
  4. PREVACID [Suspect]
     Active Substance: LANSOPRAZOLE
  5. AVANDIA [Suspect]
     Active Substance: ROSIGLITAZONE MALEATE
     Indication: PRODUCT USED FOR UNKNOWN INDICATION
  6. ZOVIRAX [Suspect]
     Active Substance: ACYCLOVIR

REACTIONS (5)
  - Blood glucose decreased [Unknown]
  - Drug hypersensitivity [Unknown]
  - Hypoglycaemia [Unknown]
  - Contusion [Unknown]
  - Headache [Unknown]
